FAERS Safety Report 13054170 (Version 1)
Quarter: 2016Q4

REPORT INFORMATION
  Report Type: Spontaneous
  Country: DZ (occurrence: DZ)
  Receive Date: 20161222
  Receipt Date: 20161222
  Transmission Date: 20170207
  Serious: Yes (Death, Hospitalization, Other)
  Sender: FDA-Public Use
  Company Number: DZ-009507513-1611DZA014277

PATIENT
  Age: 38 Year
  Sex: Female
  Weight: 65 kg

DRUGS (7)
  1. CANCIDAS [Suspect]
     Active Substance: CASPOFUNGIN ACETATE
     Dosage: 35 MG, QD
     Route: 042
     Dates: start: 2016, end: 2016
  2. TIENAM [Concomitant]
     Active Substance: CILASTATIN SODIUM\IMIPENEM
     Dosage: 500 MG, BID DURING 7 DAYS
  3. CANCIDAS [Suspect]
     Active Substance: CASPOFUNGIN ACETATE
     Dosage: 50 MG, QD
     Route: 042
     Dates: start: 2016
  4. PYOSTACINE [Concomitant]
     Active Substance: PRISTINAMYCIN
     Dosage: 500 MG 2 TABLETS 2X/DAY
     Route: 048
  5. FLAGYL [Concomitant]
     Active Substance: METRONIDAZOLE\METRONIDAZOLE HYDROCHLORIDE
     Dosage: 500 MG, BID, STOPPED AFTER 7 DAYS
     Route: 042
  6. CANCIDAS [Suspect]
     Active Substance: CASPOFUNGIN ACETATE
     Indication: CANDIDURIA
     Dosage: 50 MG, QD
     Route: 042
  7. CLAFORAN [Concomitant]
     Active Substance: CEFOTAXIME SODIUM
     Dosage: 1 G, BID
     Route: 042

REACTIONS (4)
  - Eschar [Fatal]
  - Disease complication [Fatal]
  - Aspartate aminotransferase increased [Recovered/Resolved]
  - Systemic candida [Fatal]

NARRATIVE: CASE EVENT DATE: 20161121
